FAERS Safety Report 7528530-4 (Version None)
Quarter: 2011Q2

REPORT INFORMATION
  Report Type: 
  Country: None (occurrence: None)
  Receive Date: 20110607
  Receipt Date: 20110214
  Transmission Date: 20111010
  Serious: No
  Sender: FDA-Public Use
  Company Number: US-ASTRAZENECA-2011SE12735

PATIENT

DRUGS (2)
  1. ANTACIDS [Suspect]
     Route: 048
     Dates: start: 20110213, end: 20110213
  2. PRILOSEC OTC [Suspect]
     Dosage: 1 TABLET, 1 ONLY FOR 1 DAY
     Route: 048
     Dates: start: 20110213, end: 20110213

REACTIONS (5)
  - PRURITUS GENERALISED [None]
  - FEELING HOT [None]
  - INAPPROPRIATE SCHEDULE OF DRUG ADMINISTRATION [None]
  - SWELLING FACE [None]
  - RASH [None]
